FAERS Safety Report 7992886 (Version 3)
Quarter: 2014Q1

REPORT INFORMATION
  Report Type: Spontaneous
  Country: US (occurrence: US)
  Receive Date: 20110615
  Receipt Date: 20140110
  Transmission Date: 20141002
  Serious: Yes (Hospitalization)
  Sender: FDA-Public Use
  Company Number: US-BAYER-2011-051084

PATIENT
  Age: 24 Year
  Sex: Female
  Weight: 91 kg

DRUGS (7)
  1. YASMIN [Suspect]
     Indication: ORAL CONTRACEPTION
     Dosage: UNK
     Dates: start: 2003, end: 2005
  2. OCELLA [Suspect]
     Indication: ORAL CONTRACEPTION
     Dosage: UNK
     Dates: start: 2005, end: 2011
  3. YAZ [Suspect]
     Indication: ORAL CONTRACEPTION
     Dosage: UNK
     Dates: start: 2003, end: 2005
  4. OMEPRAZOLE [Concomitant]
  5. NITROFURANTOIN [Concomitant]
  6. PROTONIX [Concomitant]
     Dosage: 40 MG, 1 DAILY
     Dates: start: 20100202
  7. MAXALT [Concomitant]
     Dosage: 5 MG, UNK
     Dates: start: 20100202

REACTIONS (8)
  - Cholecystitis chronic [None]
  - Cholelithiasis [None]
  - Abdominal pain [None]
  - Biliary dyskinesia [None]
  - Pain [None]
  - Fear [None]
  - Emotional distress [None]
  - Anhedonia [None]
